FAERS Safety Report 5470135-3 (Version None)
Quarter: 2007Q3

REPORT INFORMATION
  Report Type: 
  Country: None (occurrence: None)
  Receive Date: 20070924
  Receipt Date: 20070914
  Transmission Date: 20080115
  Serious: Yes (Hospitalization)
  Sender: FDA-Public Use
  Company Number: US020769

PATIENT
  Age: 58 Year
  Sex: Female

DRUGS (1)
  1. FENTORA [Suspect]
     Dosage: 400 UG BUCCAL
     Route: 002

REACTIONS (1)
  - CEREBROVASCULAR ACCIDENT [None]
